FAERS Safety Report 7789870-7 (Version None)
Quarter: 2011Q3

REPORT INFORMATION
  Report Type: 
  Country: None (occurrence: None)
  Receive Date: 20110930
  Receipt Date: 20110408
  Transmission Date: 20111222
  Serious: No
  Sender: FDA-Public Use
  Company Number: US-ASTRAZENECA-2010SE23216

PATIENT
  Age: 88 Year
  Sex: Female

DRUGS (2)
  1. ARIMIDEX [Suspect]
     Route: 048
  2. MULTAQ [Concomitant]

REACTIONS (7)
  - FEELING OF BODY TEMPERATURE CHANGE [None]
  - BREAST DISCOMFORT [None]
  - FEELING HOT [None]
  - HEART RATE IRREGULAR [None]
  - HOT FLUSH [None]
  - DRUG DOSE OMISSION [None]
  - GINGIVAL INFECTION [None]
